FAERS Safety Report 16651708 (Version 6)
Quarter: 2021Q4

REPORT INFORMATION
  Report Type: Report from Study
  Country: None (occurrence: JP)
  Receive Date: 20190731
  Receipt Date: 20211021
  Transmission Date: 20220303
  Serious: Yes (Hospitalization, Other)
  Sender: FDA-Public Use
  Company Number: JP-ABBVIE-19K-087-2870032-00

PATIENT
  Age: 79 Year
  Sex: Female

DRUGS (3)
  1. CARBIDOPA\LEVODOPA [Suspect]
     Active Substance: CARBIDOPA\LEVODOPA
     Indication: Parkinson^s disease
     Dosage: MD: 8.5 ML?CD: 1.5 ML/HR X 16 HRS?ED: 1 ML/UNIT X 5
     Route: 050
     Dates: start: 20190226
  2. CARBIDOPA\LEVODOPA [Suspect]
     Active Substance: CARBIDOPA\LEVODOPA
  3. ROTIGOTINE [Concomitant]
     Active Substance: ROTIGOTINE
     Indication: Parkinson^s disease
     Route: 062

REACTIONS (8)
  - Large intestine perforation [Recovered/Resolved]
  - Medical device site erosion [Unknown]
  - Product administration error [Unknown]
  - Product storage error [Unknown]
  - Product use issue [Unknown]
  - Stoma site discharge [Unknown]
  - Stoma site odour [Unknown]
  - Stoma site erythema [Unknown]

NARRATIVE: CASE EVENT DATE: 20190101
